FAERS Safety Report 9239636 (Version 1)
Quarter: 2013Q2

REPORT INFORMATION
  Report Type: Spontaneous
  Country: US (occurrence: US)
  Receive Date: 20130418
  Receipt Date: 20130418
  Transmission Date: 20140414
  Serious: No
  Sender: FDA-Public Use
  Company Number: US-009507513-1304USA008638

PATIENT
  Age: 22 Year
  Sex: Female
  Weight: 56.69 kg

DRUGS (1)
  1. NEXPLANON [Suspect]
     Indication: CONTRACEPTION
     Dosage: EVERY 3 YEARS 1 ROD
     Route: 059
     Dates: start: 20121002

REACTIONS (4)
  - Metrorrhagia [Unknown]
  - Menstruation delayed [Recovered/Resolved]
  - Weight increased [Unknown]
  - Mood swings [Recovered/Resolved]
